FAERS Safety Report 17683760 (Version 1)
Quarter: 2020Q2

REPORT INFORMATION
  Report Type: Spontaneous
  Country: PK (occurrence: PK)
  Receive Date: 20200420
  Receipt Date: 20200420
  Transmission Date: 20200714
  Serious: Yes (Other)
  Sender: FDA-Public Use
  Company Number: NVSC2020PK099630

PATIENT
  Age: 61 Year
  Sex: Female

DRUGS (4)
  1. ATRACURIUM [Concomitant]
     Active Substance: ATRACURIUM
     Indication: ANAESTHESIA
     Dosage: 0.5MG/ML
     Route: 065
  2. PROPOFOL. [Concomitant]
     Active Substance: PROPOFOL
     Indication: ANAESTHESIA
     Dosage: 1MG/KG
     Route: 065
  3. CO-AMOXICLAV [Suspect]
     Active Substance: AMOXICILLIN\CLAVULANATE POTASSIUM
     Indication: ANTIBIOTIC PROPHYLAXIS
     Dosage: 1.2 GM
     Route: 065
  4. FENTANYL. [Concomitant]
     Active Substance: FENTANYL
     Indication: ANAESTHESIA
     Dosage: 2MCG/ KG
     Route: 065

REACTIONS (4)
  - Hypotension [Recovered/Resolved]
  - Anaphylactic reaction [Recovered/Resolved]
  - Product use in unapproved indication [Unknown]
  - Bronchospasm [Recovered/Resolved]
